FAERS Safety Report 23159462 (Version 1)
Quarter: 2023Q4

REPORT INFORMATION
  Report Type: Spontaneous
  Country: US (occurrence: None)
  Receive Date: 20231107
  Receipt Date: 20231107
  Transmission Date: 20240109
  Serious: Yes (Other)
  Sender: FDA-Public Use
  Company Number: None

PATIENT
  Age: 14 Year
  Sex: Male
  Weight: 48.1 kg

DRUGS (3)
  1. SKYTROFA [Suspect]
     Active Substance: LONAPEGSOMATROPIN-TCGD
     Indication: Growth hormone deficiency
     Dosage: 11 MG EVERY WEEK SUBCUTANEOUS?
     Route: 058
     Dates: start: 20230901, end: 20230928
  2. anastrazole 1 mg [Concomitant]
     Dates: start: 20230907
  3. LEVOTHYROXINE [Concomitant]
     Active Substance: LEVOTHYROXINE
     Dates: start: 20200430

REACTIONS (6)
  - Headache [None]
  - Vision blurred [None]
  - Dizziness [None]
  - Tremor [None]
  - Loss of consciousness [None]
  - Musculoskeletal pain [None]

NARRATIVE: CASE EVENT DATE: 20231002
